FAERS Safety Report 21964887 (Version 5)
Quarter: 2023Q1

REPORT INFORMATION
  Report Type: Report from Study
  Country: US (occurrence: US)
  Receive Date: 20230207
  Receipt Date: 20230228
  Transmission Date: 20230418
  Serious: Yes (Hospitalization)
  Sender: FDA-Public Use
  Company Number: US-JNJFOC-20221002449

PATIENT
  Age: 38 Year
  Sex: Female
  Weight: 49.5 kg

DRUGS (12)
  1. SELEXIPAG [Suspect]
     Active Substance: SELEXIPAG
     Indication: Pulmonary hypertension
     Route: 048
  2. EPOPROSTENOL SODIUM [Suspect]
     Active Substance: EPOPROSTENOL SODIUM
     Indication: Pulmonary hypertension
     Route: 042
  3. EPOPROSTENOL SODIUM [Suspect]
     Active Substance: EPOPROSTENOL SODIUM
     Dosage: DOSE CHANGED ON 08/OCT/2022
     Route: 042
  4. EPOPROSTENOL SODIUM [Suspect]
     Active Substance: EPOPROSTENOL SODIUM
     Route: 042
  5. EPOPROSTENOL SODIUM [Suspect]
     Active Substance: EPOPROSTENOL SODIUM
     Route: 042
  6. EPOPROSTENOL SODIUM [Suspect]
     Active Substance: EPOPROSTENOL SODIUM
     Route: 042
  7. EPOPROSTENOL SODIUM [Suspect]
     Active Substance: EPOPROSTENOL SODIUM
     Dosage: 13/NOV/2022
     Route: 042
  8. EPOPROSTENOL SODIUM [Suspect]
     Active Substance: EPOPROSTENOL SODIUM
     Route: 042
  9. EPOPROSTENOL SODIUM [Suspect]
     Active Substance: EPOPROSTENOL SODIUM
     Route: 042
  10. EPOPROSTENOL SODIUM [Suspect]
     Active Substance: EPOPROSTENOL SODIUM
     Route: 042
  11. WARFARIN [Concomitant]
     Active Substance: WARFARIN
  12. LETAIRIS [Concomitant]
     Active Substance: AMBRISENTAN

REACTIONS (27)
  - Cardiac failure [Unknown]
  - Therapy change [Unknown]
  - Catheter placement [Unknown]
  - Intensive care [Unknown]
  - Chest pain [Not Recovered/Not Resolved]
  - Vascular device occlusion [Unknown]
  - Hypotension [Unknown]
  - Pain in extremity [Not Recovered/Not Resolved]
  - Dyspnoea exertional [Not Recovered/Not Resolved]
  - Fatigue [Unknown]
  - Oedema peripheral [Unknown]
  - Flushing [Not Recovered/Not Resolved]
  - Diarrhoea [Unknown]
  - Pain in jaw [Not Recovered/Not Resolved]
  - Decreased appetite [Unknown]
  - Pain in extremity [Unknown]
  - Peripheral swelling [Unknown]
  - Cyanosis [Unknown]
  - Application site rash [Recovering/Resolving]
  - Skin warm [Unknown]
  - Application site pruritus [Recovering/Resolving]
  - Dermatitis [Unknown]
  - Ventricular extrasystoles [Unknown]
  - Underdose [Unknown]
  - Device issue [Unknown]
  - Product administration interrupted [Unknown]
  - COVID-19 [Unknown]

NARRATIVE: CASE EVENT DATE: 20220101
